FAERS Safety Report 11916988 (Version 2)
Quarter: 2016Q1

REPORT INFORMATION
  Report Type: Spontaneous
  Country: CO (occurrence: CO)
  Receive Date: 20160114
  Receipt Date: 20160128
  Transmission Date: 20160526
  Serious: Yes (Death, Hospitalization, Other)
  Sender: FDA-Public Use
  Company Number: CO-009507513-1601COL003993

PATIENT
  Age: 36 Year
  Sex: Male
  Weight: 55 kg

DRUGS (6)
  1. RALTEGRAVIR POTASSIUM [Suspect]
     Active Substance: RALTEGRAVIR POTASSIUM
     Indication: HIV INFECTION
     Dosage: 400 MG, Q12H
     Route: 048
     Dates: start: 20150205, end: 20160102
  2. EMTRICITABINE [Suspect]
     Active Substance: EMTRICITABINE
     Indication: HIV INFECTION
     Dosage: 200 MG, QD
     Route: 048
     Dates: start: 20150205, end: 20160102
  3. PYRAZINAMIDE. [Concomitant]
     Active Substance: PYRAZINAMIDE
     Indication: TUBERCULOSIS
     Dosage: FROM MONDAY TO SATURDAY
  4. ISONIAZID. [Concomitant]
     Active Substance: ISONIAZID
     Indication: TUBERCULOSIS
     Dosage: FROM MONDAY TO SATURDAY
  5. RIFAMPIN. [Concomitant]
     Active Substance: RIFAMPIN
     Indication: TUBERCULOSIS
     Dosage: 48 DOSES, FROM MONDAY TO SATURDAY
  6. TRUVADA [Suspect]
     Active Substance: EMTRICITABINE\TENOFOVIR DISOPROXIL FUMARATE
     Indication: HIV INFECTION
     Dosage: 300 MG, QD
     Route: 048
     Dates: start: 20150205, end: 20160102

REACTIONS (2)
  - Pancreatitis acute [Fatal]
  - Hepatic function abnormal [Unknown]

NARRATIVE: CASE EVENT DATE: 20151218
